FAERS Safety Report 22241043 (Version 3)
Quarter: 2023Q2

REPORT INFORMATION
  Report Type: Report from Study
  Country: US (occurrence: US)
  Receive Date: 20230421
  Receipt Date: 20230523
  Transmission Date: 20230722
  Serious: Yes (Other)
  Sender: FDA-Public Use
  Company Number: US-TAIHOP-2023-002975

PATIENT
  Sex: Male
  Weight: 88.0 kg

DRUGS (3)
  1. LONSURF [Suspect]
     Active Substance: TIPIRACIL HYDROCHLORIDE\TRIFLURIDINE
     Indication: Colorectal cancer
     Dosage: TAKE 4 TABLETS IN THE MORNING AND 3 TABLETS IN THE EVENING; CYCLE UNKNOWN?DAILY DOSE: 140 MILLIGRAM(
     Route: 048
     Dates: start: 20221013
  2. LONSURF [Suspect]
     Active Substance: TIPIRACIL HYDROCHLORIDE\TRIFLURIDINE
     Indication: Colon cancer
  3. STIVARGA [Concomitant]
     Active Substance: REGORAFENIB
     Indication: Product used for unknown indication

REACTIONS (2)
  - Hypertension [Not Recovered/Not Resolved]
  - Inappropriate schedule of product administration [Unknown]
